FAERS Safety Report 8556749-2 (Version None)
Quarter: 2012Q3

REPORT INFORMATION
  Report Type: 
  Country: None (occurrence: None)
  Receive Date: 20120801
  Receipt Date: 20120723
  Transmission Date: 20120928
  Serious: Yes (Hospitalization)
  Sender: FDA-Public Use
  Company Number: IT-TEVA-349947ISR

PATIENT
  Age: 91 Year
  Sex: Female

DRUGS (10)
  1. GLYBURIDE AND METFORMIN HYDROCHLORIDE [Interacting]
     Indication: TYPE 2 DIABETES MELLITUS
     Dosage: 2.5MG GLIBENCLAMIDE/400MG METFORMIN 3 TIMES DAILY
     Route: 048
  2. NADROPARIN CALCIUM [Interacting]
     Dosage: 3800 IU (INTERNATIONAL UNIT);
     Route: 058
  3. ENALAPRIL MALEATE AND HYDROCHLOROTHIAZIDE [Concomitant]
     Indication: HYPERTENSION
     Dosage: ENALAPRIL 20MG/HYDROCHLOROTHIAZIDE 12.5MG ONCE/DAY
     Route: 048
  4. LEVOFLOXACIN [Suspect]
     Indication: BACTERIAL INFECTION
     Dosage: 500 MILLIGRAM;
     Route: 048
  5. ASPIRIN [Concomitant]
     Route: 048
  6. TRAMADOL HYDROCHLORIDE [Interacting]
     Route: 065
  7. BUPRENORPHINE [Interacting]
     Indication: PAIN
     Dosage: 35 MICROG/HOUR
     Route: 062
  8. INSULIN [Concomitant]
     Route: 065
  9. LANSOPRAZOLE [Concomitant]
     Dosage: 30MG
     Route: 065
  10. ENALAPRIL MALEATE [Concomitant]
     Indication: HYPERTENSION
     Route: 065

REACTIONS (2)
  - HYPOGLYCAEMIC COMA [None]
  - DRUG INTERACTION [None]
